FAERS Safety Report 25677745 (Version 1)
Quarter: 2025Q3

REPORT INFORMATION
  Report Type: Spontaneous
  Country: US (occurrence: US)
  Receive Date: 20250813
  Receipt Date: 20250813
  Transmission Date: 20251020
  Serious: No
  Sender: PFIZER
  Company Number: US-PFIZER INC-202500161966

PATIENT
  Age: 65 Year
  Sex: Female

DRUGS (1)
  1. EXEMESTANE [Suspect]
     Active Substance: EXEMESTANE

REACTIONS (2)
  - Hot flush [Unknown]
  - Arthralgia [Not Recovered/Not Resolved]
